FAERS Safety Report 21151169 (Version 2)
Quarter: 2022Q3

REPORT INFORMATION
  Report Type: Spontaneous
  Country: NL (occurrence: NL)
  Receive Date: 20220730
  Receipt Date: 20220811
  Transmission Date: 20221027
  Serious: Yes (Other)
  Sender: FDA-Public Use
  Company Number: None

PATIENT
  Age: 68 Year
  Sex: Female
  Weight: 100 kg

DRUGS (7)
  1. OXYCODONE [Suspect]
     Active Substance: OXYCODONE
     Indication: Back pain
     Dosage: 1X PER DAY 2 PIECES + IF NECESSARY 6X PER DAY 1X 5MG,  BRAND NAME NOT SPECIFIED
     Dates: start: 20220707, end: 20220708
  2. ACETAMINOPHEN [Concomitant]
     Active Substance: ACETAMINOPHEN
     Indication: Product used for unknown indication
     Dosage: PARACETAMOL MELTING TABLET 500MG / PARACETAMOL MELTING ACTAVIS ORODISP TABLET 500MG, NON-CURRENT DRU
  3. TRAMADOL HYDROCHLORIDE [Concomitant]
     Active Substance: TRAMADOL HYDROCHLORIDE
     Indication: Product used for unknown indication
     Dosage: TRAMADOL HCL CF CAPSULE 50MG, THERAPY START DATE  AND  THERAPY END DATE : ASKED BUT UNKNOWN
  4. NAPROXEN [Concomitant]
     Active Substance: NAPROXEN
     Indication: Product used for unknown indication
     Dosage: NAPROXEN SANDOZ TABLET 500MG - NON-CURRENT DRUG,THERAPY START DATE  AND  THERAPY END DATE : ASKED B
  5. MOVICOLON [Concomitant]
     Active Substance: POLYETHYLENE GLYCOL 3350\POTASSIUM CHLORIDE\SODIUM BICARBONATE\SODIUM CHLORIDE
     Indication: Product used for unknown indication
     Dosage: POWDER FOR DRINK, MACROGOL/SALTS PDR V BEVERAGE (MOVIC/MOLAX/LAXT/GEN) /FOR BEVERAGE IN SACHET, THER
  6. OMEPRAZOLE [Concomitant]
     Active Substance: OMEPRAZOLE
     Indication: Product used for unknown indication
     Dosage: 20 MG (MILLIGRAM),  MSR/ OMEPRAZOL RP CAPSULE MSR 20MG - NON-CURRENT DRUG, THERAPY START DATE  AND
  7. ENALAPRIL MALEATE CF [Concomitant]
     Indication: Product used for unknown indication
     Dosage: 10 MG (MILLIGRAM), ENALAPRIL MALEAAT CF TABLET 10MG - NON-CURRENT DRUG, THERAPY START DATE  AND  THE

REACTIONS (7)
  - Bradycardia [Recovering/Resolving]
  - Hypotension [Recovering/Resolving]
  - Nausea [Recovering/Resolving]
  - Pruritus [Recovering/Resolving]
  - Vision blurred [Recovering/Resolving]
  - Dizziness [Recovering/Resolving]
  - Malaise [Recovering/Resolving]

NARRATIVE: CASE EVENT DATE: 20220707
